FAERS Safety Report 23517346 (Version 1)
Quarter: 2024Q1

REPORT INFORMATION
  Report Type: Spontaneous
  Country: FR (occurrence: FR)
  Receive Date: 20240213
  Receipt Date: 20240213
  Transmission Date: 20240410
  Serious: Yes (Hospitalization, Other)
  Sender: FDA-Public Use
  Company Number: None

PATIENT
  Age: 78 Year
  Sex: Male

DRUGS (5)
  1. HYDROXYUREA [Suspect]
     Active Substance: HYDROXYUREA
     Indication: Hyperleukocytosis
     Route: 048
     Dates: start: 20150701, end: 20220328
  2. HYDROXYUREA [Suspect]
     Active Substance: HYDROXYUREA
     Indication: Hyperleukocytosis
     Dosage: REINTRODUCTION OF HYDREA?DAILY DOSE: 1 DOSAGE FORM
     Dates: start: 202301
  3. RUXOLITINIB [Suspect]
     Active Substance: RUXOLITINIB
     Indication: Anaemia
     Route: 048
  4. ARANESP [Suspect]
     Active Substance: DARBEPOETIN ALFA
  5. ARANESP [Suspect]
     Active Substance: DARBEPOETIN ALFA
     Dosage: INCREASED TO 300?G/WEEK.

REACTIONS (8)
  - Squamous cell carcinoma of skin [Not Recovered/Not Resolved]
  - Cardiac failure [Unknown]
  - Thrombocytopenia [Unknown]
  - Weight decreased [Unknown]
  - Pruritus [Unknown]
  - Splenomegaly [Unknown]
  - Pruritus [Unknown]
  - Constipation [Unknown]

NARRATIVE: CASE EVENT DATE: 20220328
